FAERS Safety Report 13701605 (Version 4)
Quarter: 2019Q3

REPORT INFORMATION
  Report Type: Spontaneous
  Country: US (occurrence: US)
  Receive Date: 20170629
  Receipt Date: 20190705
  Transmission Date: 20191004
  Serious: No
  Sender: FDA-Public Use
  Company Number: US-PFIZER INC-2017277687

PATIENT
  Sex: Female

DRUGS (1)
  1. NEOSPORIN [Suspect]
     Active Substance: BACITRACIN ZINC\NEOMYCIN SULFATE\POLYMYXIN B SULFATE
     Dosage: UNK
     Route: 061

REACTIONS (4)
  - Drug hypersensitivity [Unknown]
  - Swelling [Unknown]
  - Asthma [Unknown]
  - Erythema [Unknown]
